FAERS Safety Report 7388573-0 (Version None)
Quarter: 2011Q2

REPORT INFORMATION
  Report Type: 
  Country: None (occurrence: None)
  Receive Date: 20110401
  Receipt Date: 20110324
  Transmission Date: 20111010
  Serious: Yes (Other)
  Sender: FDA-Public Use
  Company Number: US-JNJFOC-20110311880

PATIENT
  Age: 32 Year
  Sex: Female

DRUGS (3)
  1. RISPERDAL CONSTA [Suspect]
     Route: 030
  2. RISPERDAL CONSTA [Suspect]
     Indication: BIPOLAR DISORDER
     Route: 030
  3. RISPERDAL CONSTA [Suspect]
     Route: 030

REACTIONS (2)
  - CONDITION AGGRAVATED [None]
  - MENTAL IMPAIRMENT [None]
